FAERS Safety Report 15064982 (Version 1)
Quarter: 2018Q2

REPORT INFORMATION
  Report Type: Spontaneous
  Country: US (occurrence: US)
  Receive Date: 20180626
  Receipt Date: 20180626
  Transmission Date: 20180711
  Serious: Yes (Other)
  Sender: FDA-Public Use
  Company Number: US-BEH-2018091979

PATIENT
  Age: 67 Year
  Sex: Female
  Weight: 96.15 kg

DRUGS (37)
  1. EPINEPHRINE. [Concomitant]
     Active Substance: EPINEPHRINE
  2. LIDOCAINE/PRILOCAINE [Concomitant]
     Active Substance: LIDOCAINE\PRILOCAINE
  3. TRAMADOL. [Concomitant]
     Active Substance: TRAMADOL
  4. REQUIP [Concomitant]
     Active Substance: ROPINIROLE HYDROCHLORIDE
  5. LASIX [Concomitant]
     Active Substance: FUROSEMIDE
  6. ASPIRIN. [Concomitant]
     Active Substance: ASPIRIN
  7. FERROUS SULFATE. [Concomitant]
     Active Substance: FERROUS SULFATE
  8. OXYCODONE [Concomitant]
     Active Substance: OXYCODONE
  9. NICOTINAMIDE [Concomitant]
     Active Substance: NIACINAMIDE
  10. VITAMIN E                          /00110501/ [Concomitant]
     Active Substance: TOCOPHEROL
  11. LEVOTHYROXINE. [Concomitant]
     Active Substance: LEVOTHYROXINE
  12. SINGULAIR [Concomitant]
     Active Substance: MONTELUKAST SODIUM
  13. MULTIPLE VITAMINS [Concomitant]
     Active Substance: VITAMINS
  14. AMOXICILLIN. [Concomitant]
     Active Substance: AMOXICILLIN
  15. AMLODIPINE [Concomitant]
     Active Substance: AMLODIPINE BESYLATE
  16. ACETAMINOPHEN. [Concomitant]
     Active Substance: ACETAMINOPHEN
  17. MIRALAX [Concomitant]
     Active Substance: POLYETHYLENE GLYCOL 3350
  18. LISINOPRIL. [Concomitant]
     Active Substance: LISINOPRIL
  19. ALEVE D [Concomitant]
     Active Substance: NAPROXEN SODIUM\PSEUDOEPHEDRINE HYDROCHLORIDE
  20. LOVASTATIN. [Concomitant]
     Active Substance: LOVASTATIN
  21. ADVAIR HFA [Concomitant]
     Active Substance: FLUTICASONE PROPIONATE\SALMETEROL XINAFOATE
  22. SPIRIVA [Concomitant]
     Active Substance: TIOTROPIUM BROMIDE MONOHYDRATE
  23. DUONEB [Concomitant]
     Active Substance: ALBUTEROL SULFATE\IPRATROPIUM BROMIDE
  24. CHLORTHALIDONE. [Concomitant]
     Active Substance: CHLORTHALIDONE
  25. ALEVE [Concomitant]
     Active Substance: NAPROXEN SODIUM
  26. METFORMIN [Concomitant]
     Active Substance: METFORMIN HYDROCHLORIDE
  27. OXYBUTYNIN. [Concomitant]
     Active Substance: OXYBUTYNIN CHLORIDE
  28. CLOBETASOL [Concomitant]
     Active Substance: CLOBETASOL
  29. HIZENTRA [Suspect]
     Active Substance: HUMAN IMMUNOGLOBULIN G
     Indication: IMMUNODEFICIENCY COMMON VARIABLE
     Dosage: UNK
     Route: 058
  30. CARAFATE [Concomitant]
     Active Substance: SUCRALFATE
  31. LAMICTAL [Concomitant]
     Active Substance: LAMOTRIGINE
  32. AFRIN [Concomitant]
     Active Substance: OXYMETAZOLINE
  33. VITAMIN D3 [Concomitant]
     Active Substance: CHOLECALCIFEROL
  34. HIZENTRA [Suspect]
     Active Substance: HUMAN IMMUNOGLOBULIN G
     Dosage: 10 G, QW
     Route: 058
     Dates: start: 20110315
  35. DIPHENHYDRAMINE. [Concomitant]
     Active Substance: DIPHENHYDRAMINE
  36. CLARITIN [Concomitant]
     Active Substance: LORATADINE
  37. BUDESONIDE. [Concomitant]
     Active Substance: BUDESONIDE

REACTIONS (1)
  - Gastric ulcer haemorrhage [Unknown]

NARRATIVE: CASE EVENT DATE: 20180601
